FAERS Safety Report 4339451-2 (Version None)
Quarter: 2004Q2

REPORT INFORMATION
  Report Type: 
  Country: None (occurrence: None)
  Receive Date: 20040415
  Receipt Date: 20040405
  Transmission Date: 20050107
  Serious: Yes (Hospitalization)
  Sender: FDA-Public Use
  Company Number: JP-GLAXOSMITHKLINE-B0329456A

PATIENT
  Age: 44 Year
  Sex: Male

DRUGS (7)
  1. ZANTAC [Suspect]
     Indication: GASTRIC ULCER
     Route: 042
     Dates: start: 20040330, end: 20040401
  2. CIPROXAN [Suspect]
     Route: 042
     Dates: start: 20040330, end: 20040401
  3. DEPAKENE [Suspect]
     Route: 048
     Dates: start: 20040330, end: 20040401
  4. FIRSTCIN [Concomitant]
     Route: 042
     Dates: start: 20040330, end: 20040401
  5. SOLU-MEDROL [Concomitant]
     Route: 042
     Dates: start: 20040330, end: 20040401
  6. CLEANAL [Concomitant]
     Route: 048
     Dates: start: 20040330, end: 20040401
  7. DIPYRIDAMOLE [Concomitant]
     Route: 048
     Dates: start: 20040330, end: 20040401

REACTIONS (2)
  - BLOOD CREATINE PHOSPHOKINASE INCREASED [None]
  - RHABDOMYOLYSIS [None]
